FAERS Safety Report 8129752-4 (Version None)
Quarter: 2012Q1

REPORT INFORMATION
  Report Type: 
  Country: None (occurrence: None)
  Receive Date: 20120210
  Receipt Date: 20120201
  Transmission Date: 20120608
  Serious: Yes (Hospitalization, Other)
  Sender: FDA-Public Use
  Company Number: JP-EISAI INC-E7389-01987-CLI-JP

PATIENT
  Sex: Female
  Weight: 56 kg

DRUGS (23)
  1. HALAVEN [Suspect]
     Indication: METASTASES TO SKIN
     Route: 041
     Dates: start: 20110921, end: 20111012
  2. LOXOMARIN [Concomitant]
     Route: 048
  3. FLURBIPROFEN [Concomitant]
     Indication: PAIN PROPHYLAXIS
     Route: 041
  4. RABEPRAZOLE SODIUM [Concomitant]
     Indication: PROPHYLAXIS
     Route: 048
  5. SOLU-CORTEF [Concomitant]
     Route: 041
  6. INCREMIN [Concomitant]
     Route: 048
  7. PACIF [Concomitant]
     Route: 048
  8. LEVOFLOXACIN [Concomitant]
     Route: 048
  9. HALAVEN [Suspect]
     Indication: BREAST CANCER RECURRENT
     Route: 041
     Dates: start: 20110817, end: 20110907
  10. AMOXICILLIN [Concomitant]
     Route: 048
  11. RELIFEN [Concomitant]
     Route: 048
  12. MAGMITT [Concomitant]
     Indication: PROPHYLAXIS
     Route: 048
  13. CONCENTRATED RED CELLS [Concomitant]
     Route: 041
  14. GRANISETRON [Concomitant]
     Indication: PROPHYLAXIS
     Route: 041
  15. PERAPRIN [Concomitant]
     Indication: PROPHYLAXIS
     Route: 048
  16. METRONIDAZOLE [Concomitant]
  17. EURAX [Concomitant]
     Route: 065
  18. BESOFTEN [Concomitant]
  19. HALAVEN [Suspect]
     Route: 041
     Dates: start: 20111019
  20. KAKKON-TO [Concomitant]
     Route: 048
  21. GABAPENTIN [Concomitant]
     Route: 048
  22. MORPHINE [Concomitant]
     Route: 048
  23. NOVAMIN [Concomitant]
     Indication: PROPHYLAXIS
     Route: 048

REACTIONS (3)
  - NEUTROPENIA [None]
  - FEBRILE NEUTROPENIA [None]
  - SEPSIS [None]
